FAERS Safety Report 22626264 (Version 1)
Quarter: 2023Q2

REPORT INFORMATION
  Report Type: Report from Study
  Country: RU (occurrence: RU)
  Receive Date: 20230621
  Receipt Date: 20230621
  Transmission Date: 20230722
  Serious: Yes (Other)
  Sender: FDA-Public Use
  Company Number: RU-TEVA-2023-RU-2898583

PATIENT

DRUGS (3)
  1. BORTEZOMIB [Suspect]
     Active Substance: BORTEZOMIB
     Indication: Haematological malignancy
     Dosage: RECEIVED ON DAY 2 AND 5; THREE CYCLES WERE PLANNED 30 DAYS APART.
     Route: 058
  2. VALPROIC ACID [Suspect]
     Active Substance: VALPROIC ACID
     Indication: Haematological malignancy
     Dosage: 750 MILLIGRAM DAILY; RECEIVED THREE TIMES DAILY; THREE CYCLES WERE PLANNED 30 DAYS APART.
     Route: 048
  3. AZACITIDINE [Suspect]
     Active Substance: AZACITIDINE
     Indication: Haematological malignancy
     Dosage: RECEIVED ON DAYS 1-5; THREE CYCLES WERE PLANNED 30 DAYS APART
     Route: 042

REACTIONS (1)
  - Sepsis [Unknown]
